FAERS Safety Report 21482168 (Version 1)
Quarter: 2022Q4

REPORT INFORMATION
  Report Type: Spontaneous
  Country: US (occurrence: US)
  Receive Date: 20221020
  Receipt Date: 20221020
  Transmission Date: 20230113
  Serious: No
  Sender: FDA-Public Use
  Company Number: US-UNITED THERAPEUTICS-UNT-2022-024614

PATIENT
  Age: 60 Year
  Sex: Female

DRUGS (1)
  1. REMODULIN [Suspect]
     Active Substance: TREPROSTINIL
     Indication: Pulmonary arterial hypertension
     Dosage: 0.069 ?G/KG, CONTINUING
     Route: 058
     Dates: start: 20221014

REACTIONS (5)
  - Illness [Unknown]
  - Dyspnoea [Unknown]
  - Cardiac disorder [Unknown]
  - Swelling [Unknown]
  - Contrast media allergy [Unknown]

NARRATIVE: CASE EVENT DATE: 20221014
